FAERS Safety Report 6852597-X (Version None)
Quarter: 2010Q3

REPORT INFORMATION
  Report Type: 
  Country: None (occurrence: None)
  Receive Date: 20100717
  Receipt Date: 20071116
  Transmission Date: 20110219
  Serious: Yes (Other)
  Sender: FDA-Public Use
  Company Number: US-PFIZER INC-2007098370

PATIENT
  Sex: Female
  Weight: 54.4 kg

DRUGS (4)
  1. CHANTIX [Suspect]
     Indication: SMOKING CESSATION THERAPY
     Dates: start: 20071103
  2. COREG [Concomitant]
  3. MECLIZINE [Concomitant]
     Indication: DIZZINESS
     Dates: start: 20030101
  4. LISINOPRIL [Concomitant]

REACTIONS (3)
  - ABDOMINAL PAIN UPPER [None]
  - CHEST PAIN [None]
  - NAUSEA [None]
